FAERS Safety Report 5157922-6 (Version None)
Quarter: 2006Q4

REPORT INFORMATION
  Report Type: 
  Country: None (occurrence: None)
  Receive Date: 20061116
  Receipt Date: 20061103
  Transmission Date: 20070319
  Serious: Yes (Hospitalization)
  Sender: FDA-Public Use
  Company Number: 2006136032

PATIENT
  Age: 42 Year
  Sex: Female

DRUGS (4)
  1. GABAPENTIN [Suspect]
     Dates: start: 20060512
  2. TRAMADOL HCL [Suspect]
     Dates: start: 20060512
  3. TIZANIDINE HCL [Suspect]
     Dates: start: 20060512
  4. ANTIDEPRESSANTS                 (ANTIDEPRESSANTS) [Suspect]
     Dates: start: 20060512

REACTIONS (7)
  - BLOOD PRESSURE SYSTOLIC INCREASED [None]
  - BRADYCARDIA [None]
  - HEART RATE INCREASED [None]
  - LOSS OF CONSCIOUSNESS [None]
  - MULTIPLE DRUG OVERDOSE INTENTIONAL [None]
  - SOCIAL AVOIDANT BEHAVIOUR [None]
  - SOMNOLENCE [None]
